FAERS Safety Report 5112987-2 (Version None)
Quarter: 2006Q3

REPORT INFORMATION
  Report Type: 
  Country: None (occurrence: None)
  Receive Date: 20060921
  Receipt Date: 20060921
  Transmission Date: 20061208
  Serious: Yes (Hospitalization)
  Sender: FDA-Public Use
  Company Number: None

PATIENT

DRUGS (10)
  1. REMODULIN [Suspect]
     Indication: PULMONARY HYPERTENSION
     Dosage: 11.25 NG/KG/MIN AT 30ML /HR CONTINUOUS IV DRIP
     Route: 041
     Dates: start: 20040714, end: 20060920
  2. PREDNISONE [Concomitant]
  3. NORVASC [Concomitant]
  4. TACROLIMUS [Concomitant]
  5. SILDENAFIL [Concomitant]
  6. REMODULIN [Concomitant]
  7. MULTI-VITAMIN [Concomitant]
  8. TUMS [Concomitant]
  9. BACTRIM [Concomitant]
  10. PREVACID [Concomitant]

REACTIONS (3)
  - ABDOMINAL PAIN UPPER [None]
  - BLOOD CULTURE POSITIVE [None]
  - KLEBSIELLA INFECTION [None]
